FAERS Safety Report 18675235 (Version 1)
Quarter: 2020Q4

REPORT INFORMATION
  Report Type: Spontaneous
  Country: US (occurrence: US)
  Receive Date: 20201228
  Receipt Date: 20201228
  Transmission Date: 20210114
  Serious: Yes (Other)
  Sender: FDA-Public Use
  Company Number: None

PATIENT
  Age: 39 Year
  Sex: Male
  Weight: 108 kg

DRUGS (6)
  1. PROPRANOLOL [Concomitant]
     Active Substance: PROPRANOLOL HYDROCHLORIDE
  2. PALIPERIDONE. [Suspect]
     Active Substance: PALIPERIDONE
     Indication: SCHIZOPHRENIA
     Dosage: ?          QUANTITY:1 CAPSULE(S);?
     Route: 048
     Dates: start: 20201101
  3. MELATONIN [Concomitant]
     Active Substance: MELATONIN
  4. TEMAZEPAM. [Concomitant]
     Active Substance: TEMAZEPAM
  5. BUPROPION ER [Concomitant]
     Active Substance: BUPROPION
  6. VALIUM [Concomitant]
     Active Substance: DIAZEPAM

REACTIONS (4)
  - Insomnia [None]
  - Blood glucose increased [None]
  - Weight increased [None]
  - Blood cholesterol increased [None]

NARRATIVE: CASE EVENT DATE: 20201101
